FAERS Safety Report 9439595 (Version 2)
Quarter: 2013Q3

REPORT INFORMATION
  Report Type: Spontaneous
  Country: US (occurrence: US)
  Receive Date: 20130805
  Receipt Date: 20130906
  Transmission Date: 20140515
  Serious: No
  Sender: FDA-Public Use
  Company Number: US-009507513-1308USA000626

PATIENT
  Sex: Female
  Weight: 112.93 kg

DRUGS (2)
  1. NEXPLANON [Suspect]
     Indication: CONTRACEPTION
     Dosage: UNK
     Route: 059
     Dates: start: 2012
  2. SPIRONOLACTONE [Concomitant]
     Dosage: UNK

REACTIONS (4)
  - Menstruation irregular [Not Recovered/Not Resolved]
  - Blood glucose increased [Not Recovered/Not Resolved]
  - Blood cortisol abnormal [Not Recovered/Not Resolved]
  - Blood cortisol increased [Not Recovered/Not Resolved]
